FAERS Safety Report 21122605 (Version 1)
Quarter: 2022Q3

REPORT INFORMATION
  Report Type: Spontaneous
  Country: NL (occurrence: NL)
  Receive Date: 20220723
  Receipt Date: 20220723
  Transmission Date: 20221027
  Serious: Yes (Hospitalization)
  Sender: FDA-Public Use
  Company Number: None

PATIENT
  Age: 56 Year
  Sex: Male
  Weight: 101 kg

DRUGS (2)
  1. LISINOPRIL [Suspect]
     Active Substance: LISINOPRIL
     Indication: Hypertension
     Dosage: STRENGTH: 10 MG, 1
     Dates: start: 2020
  2. GLICLAZIDE [Concomitant]
     Active Substance: GLICLAZIDE
     Dosage: STRENGTH: 80 MG, CONTROLLED-RELEASE TABLET

REACTIONS (3)
  - Abdominal pain [Recovered/Resolved]
  - Back pain [Recovered/Resolved]
  - Prostatic pain [Recovered/Resolved]

NARRATIVE: CASE EVENT DATE: 20200101
